FAERS Safety Report 9758963 (Version 2)
Quarter: 2013Q4

REPORT INFORMATION
  Report Type: Spontaneous
  Country: GR (occurrence: GR)
  Receive Date: 20131216
  Receipt Date: 20131216
  Transmission Date: 20140711
  Serious: Yes (Death, Life-Threatening, Other)
  Sender: FDA-Public Use
  Company Number: GR-009507513-2011SP056452

PATIENT
  Age: 38 Year
  Sex: Male

DRUGS (1)
  1. INTRONA [Suspect]
     Indication: MALIGNANT MELANOMA STAGE II
     Dosage: 20000MIL (5 DAYS A WEEK FOR 4 WEEKS)
     Dates: start: 20111112

REACTIONS (9)
  - Death [Fatal]
  - Acute respiratory distress syndrome [Unknown]
  - Hepatic necrosis [Unknown]
  - Renal necrosis [Unknown]
  - Disseminated intravascular coagulation [Unknown]
  - Multi-organ failure [Unknown]
  - Hypotension [Unknown]
  - Off label use [Unknown]
  - Coronary artery stenosis [Unknown]
